FAERS Safety Report 9893768 (Version 1)
Quarter: 2014Q1

REPORT INFORMATION
  Report Type: Spontaneous
  Country: ES (occurrence: NL)
  Receive Date: 20140213
  Receipt Date: 20140213
  Transmission Date: 20141002
  Serious: Yes (Other)
  Sender: FDA-Public Use
  Company Number: NL-FRI-1000054246

PATIENT
  Age: 57 Year
  Sex: Female

DRUGS (6)
  1. ACLIDINIUM [Suspect]
     Indication: CHRONIC OBSTRUCTIVE PULMONARY DISEASE
     Dates: start: 20140123, end: 20140128
  2. ACLIDINIUM [Suspect]
     Indication: ASTHMA
  3. FORADIL [Concomitant]
     Dosage: 2X1
  4. ALVESCO [Concomitant]
     Dosage: 2X2
  5. NASONEX [Concomitant]
  6. AZITROMYCINE [Concomitant]

REACTIONS (2)
  - Heart rate increased [Unknown]
  - Product taste abnormal [Unknown]
